FAERS Safety Report 8268120-1 (Version None)
Quarter: 2012Q2

REPORT INFORMATION
  Report Type: 
  Country: None (occurrence: None)
  Receive Date: 20120409
  Receipt Date: 20120406
  Transmission Date: 20120825
  Serious: Yes (Hospitalization)
  Sender: FDA-Public Use
  Company Number: FR-ELI_LILLY_AND_COMPANY-FR201203007387

PATIENT
  Sex: Female

DRUGS (5)
  1. PROPRANOLOL [Concomitant]
     Dosage: 40 MG, QD
  2. DUPHALAC [Concomitant]
     Dosage: UNK, PRN
  3. GEMZAR [Suspect]
     Indication: LUNG CANCER METASTATIC
     Dosage: 1200 MG, UNK
     Route: 042
     Dates: start: 20120126, end: 20120131
  4. PRIMPERAN TAB [Concomitant]
     Dosage: UNK, PRN
  5. LASIX [Concomitant]
     Dosage: 20 MG, QD

REACTIONS (6)
  - THROMBOCYTOPENIA [None]
  - ANAEMIA [None]
  - PYREXIA [None]
  - HEPATOCELLULAR INJURY [None]
  - RASH PRURITIC [None]
  - CULTURE URINE POSITIVE [None]
